FAERS Safety Report 13142057 (Version 1)
Quarter: 2017Q1

REPORT INFORMATION
  Report Type: Spontaneous
  Country: US (occurrence: US)
  Receive Date: 20170123
  Receipt Date: 20170123
  Transmission Date: 20170428
  Serious: Yes (Hospitalization, Other)
  Sender: FDA-Public Use
  Company Number: US-MYLANLABS-2017M1003539

PATIENT

DRUGS (3)
  1. RITUXIMAB [Suspect]
     Active Substance: RITUXIMAB
     Indication: VASCULITIS
     Dosage: 3 DOSES OF 600 MG
     Route: 065
  2. VALGANCICLOVIR. [Suspect]
     Active Substance: VALGANCICLOVIR
     Indication: PRODUCT USED FOR UNKNOWN INDICATION
     Route: 065
  3. PREDNISONE. [Suspect]
     Active Substance: PREDNISONE
     Indication: VASCULITIS
     Dosage: INITIAL DOSE UNKNOWN, DECREASED TO 30 MG DAILY
     Route: 048

REACTIONS (7)
  - Campylobacter infection [Unknown]
  - Bacteraemia [Unknown]
  - Cardiac pseudoaneurysm [Unknown]
  - Neutropenia [Recovered/Resolved]
  - Infective aneurysm [Unknown]
  - Carotid artery aneurysm [Unknown]
  - Thrombocytopenia [Unknown]
